FAERS Safety Report 20921010 (Version 2)
Quarter: 2022Q2

REPORT INFORMATION
  Report Type: Spontaneous
  Country: US (occurrence: US)
  Receive Date: 20220606
  Receipt Date: 20220623
  Transmission Date: 20220720
  Serious: Yes (Other)
  Sender: FDA-Public Use
  Company Number: US-PFIZER INC-202200793505

PATIENT
  Age: 70 Year
  Sex: Female
  Weight: 69.85 kg

DRUGS (14)
  1. PAXLOVID [Interacting]
     Active Substance: NIRMATRELVIR\RITONAVIR
     Indication: COVID-19 treatment
     Dosage: [PF-07321332 300 MG]/[RITONAVIR 100 MG]; 2X/DAY
     Route: 048
     Dates: start: 20220601, end: 20220602
  2. HYDROXYCHLOROQUINE SULFATE [Interacting]
     Active Substance: HYDROXYCHLOROQUINE SULFATE
     Indication: Sjogren^s syndrome
     Dosage: 300 MG( 1-1/2 TABLETS AFTERNOON)
  3. CEVIMELINE HYDROCHLORIDE [Concomitant]
     Active Substance: CEVIMELINE HYDROCHLORIDE
     Indication: Sjogren^s syndrome
     Dosage: 30 MG, 2X/DAY(MORNING + EVENING )
  4. RESTASIS [Concomitant]
     Active Substance: CYCLOSPORINE
     Indication: Sjogren^s syndrome
     Dosage: 0.4 MG, 2X/DAY( VIAL MORNING + EVENING )
  5. DULOXETINE [Concomitant]
     Active Substance: DULOXETINE
     Indication: Depression
     Dosage: 60 MG, 1X/DAY(MORNING)
  6. AMLODIPINE [Concomitant]
     Active Substance: AMLODIPINE BESYLATE
     Indication: Hypertension
     Dosage: 2.5 MG, 1X/DAY(MORNING)
  7. OMEPRAZOLE [Concomitant]
     Active Substance: OMEPRAZOLE
     Indication: Gastrooesophageal reflux disease
     Dosage: 40 MG, 2X/DAY(MORNING + EVENING )
  8. VITAMIN B12 [Concomitant]
     Active Substance: CYANOCOBALAMIN
     Indication: Malabsorption
     Dosage: 1 ML( SHOT EVERY 4 WEEKS )
  9. MIRALAX [Concomitant]
     Active Substance: POLYETHYLENE GLYCOL 3350
     Indication: Constipation
     Dosage: UNK, DAILY
  10. FISH OIL [COD-LIVER OIL] [Concomitant]
     Indication: Eye inflammation
     Dosage: 950 MG, DAILY
  11. MAGNESIUM [Concomitant]
     Active Substance: MAGNESIUM
     Indication: Coeliac disease
     Dosage: 200 MG, 1X/DAY
  12. BIFIDOBACTERIUM ANIMALIS LACTIS [Concomitant]
     Active Substance: BIFIDOBACTERIUM ANIMALIS LACTIS
     Indication: Gastrointestinal disorder congenital
     Dosage: UNK, 1X/DAY (20 BILLION CFU )
  13. VITAMIN D3 [Concomitant]
     Active Substance: CHOLECALCIFEROL
     Indication: Blood calcium
     Dosage: 2000 IU, 1X/DAY
  14. BIOTIN [BIOTIN;CALCIUM PHOSPHATE DIBASIC] [Concomitant]
     Indication: Routine health maintenance
     Dosage: 5 MG, 1X/DAY

REACTIONS (7)
  - Sjogren^s syndrome [Recovered/Resolved]
  - Coeliac disease [Recovered/Resolved]
  - Tongue discomfort [Recovered/Resolved]
  - Taste disorder [Recovered/Resolved]
  - Glossodynia [Recovered/Resolved]
  - Dysgeusia [Recovered/Resolved]
  - Drug interaction [Recovered/Resolved]

NARRATIVE: CASE EVENT DATE: 20220601
